FAERS Safety Report 6370374-3 (Version None)
Quarter: 2009Q3

REPORT INFORMATION
  Report Type: 
  Country: None (occurrence: None)
  Receive Date: 20090921
  Receipt Date: 20090921
  Transmission Date: 20100115
  Serious: Yes (Hospitalization)
  Sender: FDA-Public Use
  Company Number: None

PATIENT
  Sex: Female
  Weight: 68.4 kg

DRUGS (6)
  1. DAUNORUBICIN HCL [Suspect]
     Dosage: 180 MG
  2. METHOTREXATE [Suspect]
     Dosage: 30 MG
  3. PEG-L-ASPARAGINASE (K-H) [Suspect]
     Dosage: 4500 IU
  4. PREDNISONE TAB [Suspect]
     Dosage: 3060 MG
  5. VINCRISTINE SULFATE [Suspect]
     Dosage: 8 MG
  6. CYTARABINE [Suspect]
     Dosage: 70 MG

REACTIONS (3)
  - DIZZINESS [None]
  - HYPERBILIRUBINAEMIA [None]
  - STOMATITIS [None]
